FAERS Safety Report 9657135 (Version 3)
Quarter: 2014Q3

REPORT INFORMATION
  Report Type: Spontaneous
  Country: CA (occurrence: CA)
  Receive Date: 20131030
  Receipt Date: 20140710
  Transmission Date: 20150326
  Serious: Yes (Hospitalization, Other)
  Sender: FDA-Public Use
  Company Number: CA-009507513-1208CAN010441

PATIENT
  Age: 57 Year
  Sex: Male
  Weight: 75 kg

DRUGS (5)
  1. EPREX [Concomitant]
     Active Substance: ERYTHROPOIETIN
     Dosage: UNK
     Route: 042
  2. RIBAVIRIN. [Suspect]
     Active Substance: RIBAVIRIN
     Indication: HEPATITIS C
     Dosage: 800 MG, QD
     Route: 048
     Dates: start: 20120220
  3. CELEXA [Concomitant]
     Active Substance: CITALOPRAM HYDROBROMIDE
     Indication: DEPRESSION
     Dosage: TOTAL DAILY DOSE: 10 MG
     Route: 048
     Dates: start: 20120413, end: 20120803
  4. VICTRELIS [Suspect]
     Active Substance: BOCEPREVIR
     Indication: HEPATITIS C
     Dosage: 800 MG, TID
     Route: 048
     Dates: start: 20120220
  5. EPREX [Concomitant]
     Active Substance: ERYTHROPOIETIN
     Indication: ANAEMIA
     Dosage: 40000 UNIT, WEEKLY
     Route: 058
     Dates: start: 20120430

REACTIONS (3)
  - Anaemia [Not Recovered/Not Resolved]
  - Transfusion [Unknown]
  - Mania [Not Recovered/Not Resolved]

NARRATIVE: CASE EVENT DATE: 20120810
